FAERS Safety Report 19703218 (Version 1)
Quarter: 2021Q3

REPORT INFORMATION
  Report Type: Spontaneous
  Country: CN (occurrence: CN)
  Receive Date: 20210816
  Receipt Date: 20210816
  Transmission Date: 20211014
  Serious: Yes (Other)
  Sender: FDA-Public Use
  Company Number: NVSC2021CN180228

PATIENT
  Age: 55 Year
  Sex: Female
  Weight: 63 kg

DRUGS (2)
  1. DIOVAN [Suspect]
     Active Substance: VALSARTAN
     Indication: SECONDARY HYPERTENSION
     Dosage: 1 DF, QD
     Route: 048
     Dates: start: 20181023, end: 20210516
  2. NORVASC [Concomitant]
     Active Substance: AMLODIPINE BESYLATE
     Indication: SECONDARY HYPERTENSION
     Dosage: 1 DF, QD
     Route: 048
     Dates: start: 20181023, end: 20210804

REACTIONS (1)
  - Tinnitus [Recovered/Resolved]

NARRATIVE: CASE EVENT DATE: 20181218
